FAERS Safety Report 7384668-6 (Version None)
Quarter: 2011Q1

REPORT INFORMATION
  Report Type: 
  Country: None (occurrence: None)
  Receive Date: 20110330
  Receipt Date: 20110316
  Transmission Date: 20110831
  Serious: Yes (Other)
  Sender: FDA-Public Use
  Company Number: PHHY2011US21652

PATIENT
  Sex: Male

DRUGS (2)
  1. GLEEVEC [Suspect]
     Dosage: 400 MG, QD
     Dates: start: 20040501
  2. MULTIVITAMIN [Concomitant]

REACTIONS (6)
  - SKIN HAEMORRHAGE [None]
  - RASH [None]
  - LIVER DISORDER [None]
  - SKIN ATROPHY [None]
  - SKIN DISORDER [None]
  - MUSCLE SPASMS [None]
